FAERS Safety Report 10342467 (Version 2)
Quarter: 2014Q3

REPORT INFORMATION
  Report Type: Spontaneous
  Country: BR (occurrence: BR)
  Receive Date: 20140725
  Receipt Date: 20140725
  Transmission Date: 20150326
  Serious: Yes (Death)
  Sender: FDA-Public Use
  Company Number: BR-PFIZER INC-2013147648

PATIENT
  Age: 46 Year
  Sex: Female
  Weight: 50.4 kg

DRUGS (3)
  1. SUTENT [Suspect]
     Active Substance: SUNITINIB MALATE
     Dosage: 50 MG CYCLE 4X2
     Route: 048
     Dates: start: 20130510
  2. NORIPURUM [Concomitant]
     Active Substance: IRON POLYMALTOSE
  3. SUTENT [Suspect]
     Active Substance: SUNITINIB MALATE
     Indication: GASTROINTESTINAL STROMAL CANCER
     Dosage: 50 MG, 1X/DAY
     Route: 048
     Dates: start: 20130417

REACTIONS (3)
  - Death [Fatal]
  - Rash macular [Unknown]
  - Localised infection [Unknown]

NARRATIVE: CASE EVENT DATE: 2013
